FAERS Safety Report 19902141 (Version 1)
Quarter: 2021Q3

REPORT INFORMATION
  Report Type: Spontaneous
  Country: CZ (occurrence: CZ)
  Receive Date: 20210930
  Receipt Date: 20210930
  Transmission Date: 20211014
  Serious: Yes (Other)
  Sender: FDA-Public Use
  Company Number: CZ-TAKEDA-2021TUS060060

PATIENT
  Age: 23 Year
  Sex: Male
  Weight: 78 kg

DRUGS (3)
  1. BRINTELLIX [Suspect]
     Active Substance: VORTIOXETINE HYDROBROMIDE
     Indication: DEPRESSION
     Dosage: 10 MILLIGRAM, BID
     Route: 065
     Dates: start: 202107, end: 202109
  2. BRINTELLIX [Suspect]
     Active Substance: VORTIOXETINE HYDROBROMIDE
     Dosage: 15 MILLIGRAM, BID
     Route: 065
     Dates: start: 2021, end: 2021
  3. EWOFEX [Concomitant]
     Indication: ASTHMA
     Dosage: 180 MILLIGRAM, QD
     Route: 065
     Dates: start: 2017

REACTIONS (2)
  - Tinnitus [Not Recovered/Not Resolved]
  - Mental disorder [Unknown]

NARRATIVE: CASE EVENT DATE: 202108
